FAERS Safety Report 11671516 (Version 1)
Quarter: 2015Q4

REPORT INFORMATION
  Report Type: Spontaneous
  Country: US (occurrence: US)
  Receive Date: 20151027
  Receipt Date: 20151027
  Transmission Date: 20160304
  Serious: No
  Sender: FDA-Public Use
  Company Number: US-ELI_LILLY_AND_COMPANY-US201006003108

PATIENT
  Sex: Female

DRUGS (2)
  1. FORTEO [Suspect]
     Active Substance: TERIPARATIDE
     Indication: OSTEOPOROSIS
     Dosage: 20 UG, DAILY (1/D)
  2. HYDROCHLOROTHIAZIDE. [Concomitant]
     Active Substance: HYDROCHLOROTHIAZIDE
     Indication: DIURETIC THERAPY
     Dosage: UNK, UNKNOWN

REACTIONS (4)
  - Pain in extremity [Unknown]
  - Asthenia [Unknown]
  - Visual impairment [Unknown]
  - Fatigue [Unknown]
